APPROVED DRUG PRODUCT: AMITRIPTYLINE HYDROCHLORIDE
Active Ingredient: AMITRIPTYLINE HYDROCHLORIDE
Strength: 25MG
Dosage Form/Route: TABLET;ORAL
Application: A088672 | Product #001
Applicant: AMERICAN THERAPEUTICS INC
Approved: Nov 20, 1984 | RLD: No | RS: No | Type: DISCN